FAERS Safety Report 12715124 (Version 1)
Quarter: 2016Q3

REPORT INFORMATION
  Report Type: Report from Study
  Country: US (occurrence: US)
  Receive Date: 20160905
  Receipt Date: 20160905
  Transmission Date: 20161109
  Serious: Yes (Other)
  Sender: FDA-Public Use
  Company Number: US-AMGEN-USASL2016115540

PATIENT
  Age: 36 Year
  Sex: Female

DRUGS (1)
  1. ENBREL [Suspect]
     Active Substance: ETANERCEPT
     Indication: RHEUMATOID ARTHRITIS
     Dosage: UNK
     Route: 065
     Dates: start: 20160824

REACTIONS (5)
  - Salivary gland enlargement [Unknown]
  - Dry mouth [Unknown]
  - Salivary gland pain [Unknown]
  - Sialoadenitis [Unknown]
  - Oral infection [Unknown]

NARRATIVE: CASE EVENT DATE: 20160828
